FAERS Safety Report 16184508 (Version 1)
Quarter: 2019Q2

REPORT INFORMATION
  Report Type: Spontaneous
  Country: HK (occurrence: HK)
  Receive Date: 20190411
  Receipt Date: 20190411
  Transmission Date: 20190711
  Serious: Yes (Death, Other)
  Sender: FDA-Public Use
  Company Number: HK-SA-2019SA098059

PATIENT
  Age: 68 Year

DRUGS (2)
  1. CYTARABINE. [Suspect]
     Active Substance: CYTARABINE
     Indication: ACUTE MYELOID LEUKAEMIA
     Dosage: 1-2 G/M2, QD
     Route: 041
  2. CLOFARABINE. [Suspect]
     Active Substance: CLOFARABINE
     Indication: ACUTE MYELOID LEUKAEMIA
     Dosage: 40 MG/M2, QD
     Route: 041

REACTIONS (2)
  - Acute myeloid leukaemia recurrent [Fatal]
  - Off label use [Unknown]
